FAERS Safety Report 24546729 (Version 1)
Quarter: 2024Q4

REPORT INFORMATION
  Report Type: Spontaneous
  Country: CA (occurrence: CA)
  Receive Date: 20241024
  Receipt Date: 20241024
  Transmission Date: 20250115
  Serious: Yes (Hospitalization)
  Sender: JOHNSON AND JOHNSON
  Company Number: CA-BAYER-2024A151413

PATIENT
  Age: 91 Year
  Sex: Female

DRUGS (12)
  1. RIVAROXABAN [Suspect]
     Active Substance: RIVAROXABAN
     Indication: Product used for unknown indication
     Route: 048
  2. MIRTAZAPINE [Concomitant]
     Active Substance: MIRTAZAPINE
  3. MELATONIN [Concomitant]
     Active Substance: MELATONIN
  4. PANTOPRAZOLE [Concomitant]
     Active Substance: PANTOPRAZOLE
  5. BISOPROLOL [Concomitant]
     Active Substance: BISOPROLOL\BISOPROLOL FUMARATE
     Route: 065
  6. LOSARTAN [Concomitant]
     Active Substance: LOSARTAN
  7. DIGOXIN [Concomitant]
     Active Substance: DIGOXIN
  8. POLYETHYLENE GLYCOLS [Concomitant]
     Active Substance: POLYETHYLENE GLYCOLS
  9. SENNA LEAF [Concomitant]
     Active Substance: SENNA LEAF
  10. LORAZEPAM [Concomitant]
     Active Substance: LORAZEPAM
     Route: 065
  11. ALMAGATE [Concomitant]
     Active Substance: ALMAGATE
     Route: 048
  12. LOPERAMIDE [Concomitant]
     Active Substance: LOPERAMIDE

REACTIONS (3)
  - Diarrhoea [Recovering/Resolving]
  - Melaena [Recovering/Resolving]
  - Upper gastrointestinal haemorrhage [Recovering/Resolving]
